FAERS Safety Report 6703031-1 (Version None)
Quarter: 2010Q2

REPORT INFORMATION
  Report Type: 
  Country: None (occurrence: None)
  Receive Date: 20100427
  Receipt Date: 20100416
  Transmission Date: 20101027
  Serious: Yes (Other)
  Sender: FDA-Public Use
  Company Number: 2010SP022407

PATIENT
  Age: 24 Year
  Sex: Female
  Weight: 63.5036 kg

DRUGS (1)
  1. NUVARING [Suspect]
     Indication: CONTRACEPTION
     Dates: start: 20091101

REACTIONS (9)
  - ABDOMINAL DISTENSION [None]
  - ANXIETY [None]
  - BOWEL MOVEMENT IRREGULARITY [None]
  - DIZZINESS [None]
  - LOSS OF CONSCIOUSNESS [None]
  - PALPITATIONS [None]
  - PARAESTHESIA [None]
  - URTICARIA [None]
  - VISION BLURRED [None]
